FAERS Safety Report 6550386-7 (Version None)
Quarter: 2010Q1

REPORT INFORMATION
  Report Type: 
  Country: None (occurrence: None)
  Receive Date: 20100125
  Receipt Date: 20100114
  Transmission Date: 20100710
  Serious: Yes (Hospitalization)
  Sender: FDA-Public Use
  Company Number: FR-PFIZER INC-2010005270

PATIENT

DRUGS (1)
  1. DALACINE [Suspect]
     Indication: STREPTOCOCCAL INFECTION
     Dosage: 600 MG, 1X/DAY
     Route: 064
     Dates: start: 20090107, end: 20090107

REACTIONS (2)
  - DRUG EXPOSURE DURING PREGNANCY [None]
  - PURPURA NEONATAL [None]
